FAERS Safety Report 6789435-X (Version None)
Quarter: 2010Q2

REPORT INFORMATION
  Report Type: 
  Country: None (occurrence: None)
  Receive Date: 20100623
  Receipt Date: 20091109
  Transmission Date: 20101027
  Serious: Yes (Other)
  Sender: FDA-Public Use
  Company Number: US-PFIZER INC-2008038300

PATIENT
  Sex: Female

DRUGS (9)
  1. PROVERA [Suspect]
     Indication: HORMONE REPLACEMENT THERAPY
     Dosage: 2.5 MG, UNK
     Route: 048
     Dates: start: 19910130, end: 19960520
  2. PREMARIN [Suspect]
     Indication: HORMONE REPLACEMENT THERAPY
     Dosage: 0.625 MG, UNK
     Route: 048
     Dates: start: 19910130, end: 19960520
  3. PREMARIN [Suspect]
     Dosage: UNK
     Dates: start: 19870101, end: 19900101
  4. PREMPRO [Suspect]
     Indication: HORMONE REPLACEMENT THERAPY
     Dosage: 0.625/2.5MG
     Route: 048
     Dates: start: 19960520, end: 19970506
  5. PREMPRO [Suspect]
     Dosage: 0.625/2.5MG
     Dates: start: 19970115, end: 19970506
  6. PREMPRO [Suspect]
     Dosage: 0.625/2.5MG
     Dates: start: 19981019, end: 20020501
  7. ACETYLSALICYLIC ACID [Concomitant]
     Indication: ARTHRITIS
     Dosage: UNK
     Dates: start: 19940101
  8. M.V.I. [Concomitant]
     Indication: MEDICAL DIET
  9. FOLIC ACID [Concomitant]
     Indication: MUSCLE SPASMS
     Dosage: UNK
     Dates: start: 19990101

REACTIONS (1)
  - BREAST CANCER [None]
